FAERS Safety Report 12993478 (Version 2)
Quarter: 2017Q1

REPORT INFORMATION
  Report Type: Spontaneous
  Country: US (occurrence: US)
  Receive Date: 20161202
  Receipt Date: 20170215
  Transmission Date: 20170428
  Serious: No
  Sender: FDA-Public Use
  Company Number: US-LUNDBECK-DKLU2021248

PATIENT
  Age: 74 Year
  Sex: Female

DRUGS (4)
  1. FLORINEF ACETATE [Suspect]
     Active Substance: FLUDROCORTISONE ACETATE
     Indication: PRODUCT USED FOR UNKNOWN INDICATION
     Route: 065
  2. NORTHERA [Suspect]
     Active Substance: DROXIDOPA
     Indication: NEURODEGENERATIVE DISORDER
     Dosage: SCHEDULE C- FIXED DOSE
     Route: 048
     Dates: start: 20161016
  3. NORTHERA [Suspect]
     Active Substance: DROXIDOPA
     Dosage: SCHEDULE C AND TITRATING
     Route: 065
  4. FLORINEF ACETATE [Suspect]
     Active Substance: FLUDROCORTISONE ACETATE
     Route: 065

REACTIONS (3)
  - Dizziness [Recovering/Resolving]
  - Therapeutic response decreased [Unknown]
  - Blood pressure increased [Unknown]

NARRATIVE: CASE EVENT DATE: 20161016
